FAERS Safety Report 17159692 (Version 1)
Quarter: 2019Q4

REPORT INFORMATION
  Report Type: Spontaneous
  Country: JP (occurrence: JP)
  Receive Date: 20191216
  Receipt Date: 20191216
  Transmission Date: 20200122
  Serious: Yes (Other)
  Sender: FDA-Public Use
  Company Number: JP-PFIZER INC-2019535805

PATIENT
  Age: 62 Year
  Sex: Female

DRUGS (6)
  1. TOCILIZUMAB. [Concomitant]
     Active Substance: TOCILIZUMAB
  2. ABATACEPT [Concomitant]
     Active Substance: ABATACEPT
  3. TOFACITINIB CITRATE [Suspect]
     Active Substance: TOFACITINIB CITRATE
     Dosage: 10 MG, DAILY
  4. INFLIXIMAB [Concomitant]
     Active Substance: INFLIXIMAB
  5. PREDNISOLONE. [Concomitant]
     Active Substance: PREDNISOLONE
  6. METHOTREXATE SODIUM. [Concomitant]
     Active Substance: METHOTREXATE SODIUM

REACTIONS (3)
  - Thrombocytopenia [Recovered/Resolved]
  - Liver disorder [Not Recovered/Not Resolved]
  - Cytomegalovirus viraemia [Recovered/Resolved]
